FAERS Safety Report 10997752 (Version 1)
Quarter: 2015Q2

REPORT INFORMATION
  Report Type: Spontaneous
  Country: US (occurrence: US)
  Receive Date: 20150408
  Receipt Date: 20150408
  Transmission Date: 20150821
  Serious: No
  Sender: FDA-Public Use
  Company Number: US-BANPHARM-20143075

PATIENT
  Age: 82 Year
  Sex: Female
  Weight: 64.41 kg

DRUGS (2)
  1. ALEVE [Suspect]
     Active Substance: NAPROXEN SODIUM
     Dosage: 1 DF, ONCE,
     Route: 048
     Dates: start: 20140910, end: 20140910
  2. BLOOD PRESSURE MEDICATION [Concomitant]
     Active Substance: UNSPECIFIED INGREDIENT

REACTIONS (1)
  - Foreign body [Recovered/Resolved]

NARRATIVE: CASE EVENT DATE: 20140910
